FAERS Safety Report 17474983 (Version 3)
Quarter: 2020Q4

REPORT INFORMATION
  Report Type: Report from Study
  Country: CA (occurrence: CA)
  Receive Date: 20200228
  Receipt Date: 20201203
  Transmission Date: 20210113
  Serious: Yes (Other)
  Sender: FDA-Public Use
  Company Number: CA-JNJFOC-20190811789

PATIENT
  Age: 76 Year
  Sex: Male

DRUGS (1)
  1. STELARA [Suspect]
     Active Substance: USTEKINUMAB
     Indication: CROHN^S DISEASE
     Dosage: THE DOSE OF USTEKINUMAB WAS INCREASED FROM 400MG TO 800MG ON 9/AUG/2019
     Route: 058
     Dates: start: 20171122

REACTIONS (3)
  - Product use issue [Unknown]
  - Off label use [Unknown]
  - Herpes ophthalmic [Recovering/Resolving]

NARRATIVE: CASE EVENT DATE: 20190804
